FAERS Safety Report 13657517 (Version 1)
Quarter: 2017Q2

REPORT INFORMATION
  Report Type: Spontaneous
  Country: US (occurrence: US)
  Receive Date: 20170615
  Receipt Date: 20170615
  Transmission Date: 20170830
  Serious: No
  Sender: FDA-Public Use
  Company Number: US-ELI_LILLY_AND_COMPANY-US201706003523

PATIENT
  Sex: Female

DRUGS (2)
  1. TRULICITY [Suspect]
     Active Substance: DULAGLUTIDE
     Indication: PRODUCT USED FOR UNKNOWN INDICATION
     Dosage: 1.5 MG, WEEKLY (1/W)
     Route: 065
  2. TOUJEO [Concomitant]
     Active Substance: INSULIN GLARGINE

REACTIONS (7)
  - Underdose [Recovered/Resolved]
  - Drug dose omission [Recovered/Resolved]
  - Injection site pain [Recovered/Resolved]
  - Injection site haemorrhage [Recovered/Resolved]
  - Blood glucose increased [Unknown]
  - Needle track marks [Unknown]
  - Injection site bruising [Not Recovered/Not Resolved]
